FAERS Safety Report 4284829-9 (Version None)
Quarter: 2004Q1

REPORT INFORMATION
  Report Type: 
  Country: None (occurrence: None)
  Receive Date: 20040204
  Receipt Date: 20030924
  Transmission Date: 20041129
  Serious: Yes (Other)
  Sender: FDA-Public Use
  Company Number: FR-BRISTOL-MYERS SQUIBB COMPANY-12393872

PATIENT
  Age: 27 Year
  Sex: Female

DRUGS (4)
  1. SUSTIVA [Suspect]
     Indication: HIV INFECTION
     Route: 048
     Dates: start: 20030416
  2. VIDEX [Suspect]
     Indication: HIV INFECTION
     Dates: start: 19981128
  3. EPIVIR [Suspect]
     Indication: HIV INFECTION
     Dates: start: 20030401
  4. SEROPRAM [Suspect]
     Indication: DEPRESSION
     Route: 048
     Dates: start: 20030401

REACTIONS (4)
  - ALANINE AMINOTRANSFERASE INCREASED [None]
  - ASPARTATE AMINOTRANSFERASE INCREASED [None]
  - BLOOD ALKALINE PHOSPHATASE INCREASED [None]
  - GAMMA-GLUTAMYLTRANSFERASE INCREASED [None]
